FAERS Safety Report 8308569 (Version 62)
Quarter: 2018Q3

REPORT INFORMATION
  Report Type: Report from Study
  Country: CA (occurrence: CA)
  Receive Date: 20111222
  Receipt Date: 20180926
  Transmission Date: 20181010
  Serious: Yes (Hospitalization)
  Sender: FDA-Public Use
  Company Number: PHHY2011CA108317

PATIENT
  Age: 64 Year
  Sex: Male

DRUGS (10)
  1. SANDOSTATIN LAR DEPOT [Suspect]
     Active Substance: OCTREOTIDE ACETATE
     Dosage: 40 MG, QMO
     Route: 030
  2. SANDOSTATIN LAR DEPOT [Suspect]
     Active Substance: OCTREOTIDE ACETATE
     Dosage: 30 MG, QMO (ONCE A MONTH)
     Route: 030
     Dates: start: 20121011
  3. MORPHINE [Suspect]
     Active Substance: MORPHINE
     Indication: PRODUCT USED FOR UNKNOWN INDICATION
     Route: 065
  4. SANDOSTATIN LAR DEPOT [Suspect]
     Active Substance: OCTREOTIDE ACETATE
     Dosage: 40 MG, QMO (ONCE A MONTH)
     Route: 030
     Dates: start: 20130620
  5. SANDOSTATIN [Suspect]
     Active Substance: OCTREOTIDE ACETATE
     Indication: SHORT-BOWEL SYNDROME
     Dosage: TID (FOR 2 WEEKS)
     Route: 058
     Dates: start: 20110913, end: 2011
  6. SANDOSTATIN LAR DEPOT [Suspect]
     Active Substance: OCTREOTIDE ACETATE
     Indication: SHORT-BOWEL SYNDROME
     Dosage: 20 MG, QMO (ONCE A MONTH)
     Route: 030
     Dates: start: 20110913
  7. CODEINE [Suspect]
     Active Substance: CODEINE
     Indication: PRODUCT USED FOR UNKNOWN INDICATION
     Route: 065
  8. SANDOSTATIN LAR DEPOT [Suspect]
     Active Substance: OCTREOTIDE ACETATE
     Dosage: 40 MG, QMO (EVERY 4 WEEKS)
     Route: 030
     Dates: start: 20150717
  9. SANDOSTATIN LAR DEPOT [Suspect]
     Active Substance: OCTREOTIDE ACETATE
     Dosage: 40 MG, QMO
     Route: 030
  10. SANDOSTATIN LAR DEPOT [Suspect]
     Active Substance: OCTREOTIDE ACETATE
     Dosage: UNK
     Route: 065
     Dates: start: 20170127

REACTIONS (23)
  - Blood pressure increased [Unknown]
  - Pain in extremity [Unknown]
  - Kidney infection [Unknown]
  - Gastrooesophageal reflux disease [Unknown]
  - Respiratory disorder [Unknown]
  - Dehydration [Unknown]
  - Vomiting [Recovering/Resolving]
  - Upper limb fracture [Unknown]
  - Catheter site infection [Unknown]
  - Immunodeficiency [Unknown]
  - Gastrointestinal bacterial infection [Unknown]
  - Infection [Unknown]
  - Gastrointestinal disorder [Unknown]
  - Cortisol decreased [Unknown]
  - Fall [Unknown]
  - Pneumonia [Unknown]
  - Fungal infection [Unknown]
  - Electrolyte imbalance [Unknown]
  - Contusion [Unknown]
  - Bacterial test positive [Unknown]
  - Malaise [Unknown]
  - Intestinal obstruction [Unknown]
  - Product use in unapproved indication [Unknown]

NARRATIVE: CASE EVENT DATE: 20110913
